FAERS Safety Report 9494499 (Version 1)
Quarter: 2013Q3

REPORT INFORMATION
  Report Type: Spontaneous
  Country: FR (occurrence: None)
  Receive Date: 20130828
  Receipt Date: 20130828
  Transmission Date: 20140515
  Serious: Yes (Hospitalization)
  Sender: FDA-Public Use
  Company Number: ACET20130024

PATIENT
  Age: 17 Year
  Sex: Female

DRUGS (3)
  1. Q-PAP EXTRA STRENGTH [Suspect]
     Indication: INTENTIONAL OVERDOSE
     Route: 048
  2. ALPRAZOLAM IR TABLETS (ALPRAZOLAM) (TABLETS) (ALPRAZOLAM) [Concomitant]
  3. CEFPODOXIME (CEFPODOXIME) (TABLETS) (CEFPODOXIME) [Concomitant]

REACTIONS (5)
  - Renal failure acute [None]
  - Intentional overdose [None]
  - Hepatic failure [None]
  - Hepatocellular injury [None]
  - Toxicity to various agents [None]
